FAERS Safety Report 7463126-4 (Version None)
Quarter: 2011Q2

REPORT INFORMATION
  Report Type: 
  Country: None (occurrence: None)
  Receive Date: 20110506
  Receipt Date: 20110427
  Transmission Date: 20111010
  Serious: Yes (Other)
  Sender: FDA-Public Use
  Company Number: US-ROCHE-747543

PATIENT
  Sex: Female
  Weight: 56.7 kg

DRUGS (1)
  1. ACCUTANE [Suspect]
     Indication: ACNE
     Route: 065
     Dates: start: 19880401, end: 19880801

REACTIONS (9)
  - IRRITABLE BOWEL SYNDROME [None]
  - DEPRESSION [None]
  - GASTROINTESTINAL INJURY [None]
  - ANAEMIA [None]
  - COAGULOPATHY [None]
  - ARTHRITIS [None]
  - COLITIS ULCERATIVE [None]
  - BACK PAIN [None]
  - PEPTIC ULCER [None]
